FAERS Safety Report 24529803 (Version 1)
Quarter: 2024Q4

REPORT INFORMATION
  Report Type: Report from Study
  Country: US (occurrence: US)
  Receive Date: 20241021
  Receipt Date: 20241021
  Transmission Date: 20250114
  Serious: No
  Sender: SUNOVION
  Company Number: US-SUMITOMO PHARMA SWITZERLAND GMBH-2021MYSCI0600212

PATIENT

DRUGS (1)
  1. ORGOVYX [Suspect]
     Active Substance: RELUGOLIX
     Indication: Prostate cancer
     Dosage: 120 MILLIGRAM, QD (TAKE ONE TABLET BY MOUTH ONCE DAILY AROUND THE SAME TIME)
     Route: 048
     Dates: start: 20210327

REACTIONS (2)
  - Peripheral swelling [Unknown]
  - Product use issue [Unknown]
